FAERS Safety Report 10726955 (Version 2)
Quarter: 2015Q2

REPORT INFORMATION
  Report Type: Spontaneous
  Country: DK (occurrence: DK)
  Receive Date: 20150121
  Receipt Date: 20150626
  Transmission Date: 20150821
  Serious: Yes (Disabling, Other)
  Sender: FDA-Public Use
  Company Number: PHHY2014DK170589

PATIENT
  Age: 51 Year
  Sex: Male

DRUGS (17)
  1. MTX HEXAL [Suspect]
     Active Substance: METHOTREXATE SODIUM
     Indication: PRODUCT USE ISSUE
  2. ONCOVIN [Concomitant]
     Active Substance: VINCRISTINE SULFATE
     Indication: BURKITT^S LYMPHOMA
     Dosage: HYPER-CVAD
     Route: 065
     Dates: start: 2013
  3. CYTARABINE. [Concomitant]
     Active Substance: CYTARABINE
     Dosage: 29-JUL,16-AUG AND 5-SEP 2013
     Dates: start: 20130729
  4. DOXORUBICIN [Concomitant]
     Active Substance: DOXORUBICIN
     Indication: BURKITT^S LYMPHOMA
     Dosage: UNK (HYPER-CVAD)
     Route: 065
     Dates: start: 2013
  5. HOLOXAN [Concomitant]
     Active Substance: IFOSFAMIDE
     Indication: BURKITT^S LYMPHOMA
     Dosage: UNK
     Route: 065
     Dates: start: 2013
  6. MTX HEXAL [Suspect]
     Active Substance: METHOTREXATE SODIUM
     Indication: PRODUCT USE ISSUE
  7. BRILIQUE [Concomitant]
     Active Substance: TICAGRELOR
     Indication: STENT PLACEMENT
     Route: 048
  8. SENDOXAN [Concomitant]
     Active Substance: CYCLOPHOSPHAMIDE
     Indication: BURKITT^S LYMPHOMA
     Dosage: UNK (HYPER-CVAD)
     Route: 065
     Dates: start: 2013
  9. CYTARABINE. [Concomitant]
     Active Substance: CYTARABINE
     Indication: BURKITT^S LYMPHOMA
     Dosage: UNK (TAKEN ON 29 JUL 2013,16 AUG 2013AND 05 SEP 2013)
     Route: 065
     Dates: start: 20130729
  10. DOXORUBICIN [Concomitant]
     Active Substance: DOXORUBICIN
     Dosage: HYPER-CVAD
  11. DEXAMETHASONE. [Concomitant]
     Active Substance: DEXAMETHASONE
     Indication: BURKITT^S LYMPHOMA
     Dosage: UNK (HYPER-CVAD)
     Route: 065
  12. DEXAMETHASONE. [Concomitant]
     Active Substance: DEXAMETHASONE
     Dosage: HYPER-CVAD
  13. HJERTEMAGNYL [Concomitant]
     Active Substance: ASPIRIN\MAGNESIUM OXIDE
     Indication: ANTICOAGULANT THERAPY
  14. MTX HEXAL [Suspect]
     Active Substance: METHOTREXATE SODIUM
     Indication: BURKITT^S LYMPHOMA
     Dosage: (ON 12-AUG-2013 + ON 2 SEP 2013 12 MG IN 4.8ML)12 MG, UNK
     Route: 037
     Dates: start: 20130812
  15. BRILIQUE [Concomitant]
     Active Substance: TICAGRELOR
     Indication: ANTICOAGULANT THERAPY
  16. ATORVASTATIN [Concomitant]
     Active Substance: ATORVASTATIN
     Indication: STENT PLACEMENT
     Dosage: 80 MG, UNK (DAILY DOSE: 80 MILLIGRAM)
     Route: 048
  17. HJERTEMAGNYL [Concomitant]
     Active Substance: ASPIRIN\MAGNESIUM OXIDE
     Indication: STENT PLACEMENT
     Dosage: UNK
     Route: 048

REACTIONS (8)
  - Gastrointestinal disorder [Not Recovered/Not Resolved]
  - Bladder dysfunction [Not Recovered/Not Resolved]
  - Pain [Not Recovered/Not Resolved]
  - Paraplegia [Unknown]
  - Hypoaesthesia [Not Recovered/Not Resolved]
  - Dysuria [Not Recovered/Not Resolved]
  - Myelopathy [Not Recovered/Not Resolved]
  - Sensory disturbance [Not Recovered/Not Resolved]

NARRATIVE: CASE EVENT DATE: 201309
